FAERS Safety Report 5227104-8 (Version None)
Quarter: 2007Q1

REPORT INFORMATION
  Report Type: 
  Country: None (occurrence: None)
  Receive Date: 20070201
  Receipt Date: 20070201
  Transmission Date: 20070707
  Serious: Yes (Other)
  Sender: FDA-Public Use
  Company Number: None

PATIENT
  Age: 55 Year
  Sex: Female

DRUGS (2)
  1. PERCOCET [Suspect]
     Indication: ARTHROPATHY
     Dosage: 5 BID PRN PO
     Route: 048
     Dates: start: 20061213, end: 20061213
  2. FLUOXETINE [Concomitant]

REACTIONS (2)
  - PRURITUS [None]
  - URTICARIA [None]
